FAERS Safety Report 8441962 (Version 2)
Quarter: 2012Q4

REPORT INFORMATION
  Report Type: 
  Country: US (occurrence: US)
  Receive Date: 20120305
  Receipt Date: 20121106
  Transmission Date: 20130627
  Serious: Yes (Hospitalization)
  Sender: FDA-Public Use
  Company Number: US-ASTRAZENECA-2012SE13205

PATIENT
  Age: 81 Year
  Sex: Female

DRUGS (3)
  1. ATACAND HCT [Suspect]
     Route: 048
  2. NEXIUM [Suspect]
     Route: 048
  3. CRESTOR [Suspect]
     Route: 048

REACTIONS (3)
  - Fall [Unknown]
  - Hip fracture [Unknown]
  - Hypoacusis [Unknown]
